FAERS Safety Report 25248337 (Version 1)
Quarter: 2025Q2

REPORT INFORMATION
  Report Type: Report from Study
  Country: US (occurrence: US)
  Receive Date: 20250429
  Receipt Date: 20250429
  Transmission Date: 20250717
  Serious: No
  Sender: STALLERGENES
  Company Number: US-STALCOR-2025-AER-00431

PATIENT
  Age: 18 Year
  Sex: Male

DRUGS (2)
  1. PALFORZIA [Suspect]
     Active Substance: PEANUT
     Indication: Food allergy
     Dosage: REACTIVE DOSE- LVL6 AT 80MG, UP DOSE ATTEMPT ON 03-FEB-2025
     Route: 048
     Dates: start: 20250203, end: 20250203
  2. PALFORZIA [Suspect]
     Active Substance: PEANUT
     Dosage: LAST TOLERATED DOSE TO BE REPEATED AGAIN FOR TWO WEEKS IN RESPONSE TO THE REPORTED AE?2X20MG: LVL 6:
     Route: 048

REACTIONS (1)
  - Hypersensitivity [Not Recovered/Not Resolved]

NARRATIVE: CASE EVENT DATE: 20250203
